FAERS Safety Report 18043926 (Version 1)
Quarter: 2020Q3

REPORT INFORMATION
  Report Type: Spontaneous
  Country: IN (occurrence: IN)
  Receive Date: 20200717
  Receipt Date: 20200717
  Transmission Date: 20201103
  Serious: No
  Sender: FDA-Public Use
  Company Number: None

PATIENT
  Sex: Male
  Weight: 63 kg

DRUGS (1)
  1. ADAPALENE BENZOYL PEROXIDE GEL [Suspect]
     Active Substance: ADAPALENE\BENZOYL PEROXIDE
     Dates: start: 20200715, end: 20200715

REACTIONS (1)
  - Hypersensitivity [None]
